FAERS Safety Report 9281060 (Version 1)
Quarter: 2013Q2

REPORT INFORMATION
  Report Type: Spontaneous
  Country: US (occurrence: None)
  Receive Date: 20130508
  Receipt Date: 20130508
  Transmission Date: 20140414
  Serious: Yes (Disabling)
  Sender: FDA-Public Use
  Company Number: None

PATIENT
  Age: 19 Year
  Sex: Female

DRUGS (1)
  1. VENLAFAXINE HCL [Suspect]
     Indication: MAJOR DEPRESSION
     Dosage: UP TO 300 MG QD PO
     Route: 048
     Dates: start: 20130329, end: 20130426

REACTIONS (4)
  - Product substitution issue [None]
  - Irritability [None]
  - Asthenia [None]
  - Depressed mood [None]
